FAERS Safety Report 14784890 (Version 1)
Quarter: 2018Q2

REPORT INFORMATION
  Report Type: Report from Study
  Country: AU (occurrence: AU)
  Receive Date: 20180420
  Receipt Date: 20180420
  Transmission Date: 20180711
  Serious: Yes (Other)
  Sender: FDA-Public Use
  Company Number: AU-REGENERON PHARMACEUTICALS, INC.-2018-20899

PATIENT

DRUGS (2)
  1. EYLEA [Suspect]
     Active Substance: AFLIBERCEPT
     Dosage: INJECTION TO BOTH EYES, LAST INJECTION PRIOR TO EVENTS
     Route: 031
     Dates: start: 20180329, end: 20180329
  2. EYLEA [Suspect]
     Active Substance: AFLIBERCEPT
     Indication: NEOVASCULAR AGE-RELATED MACULAR DEGENERATION
     Dosage: INJECTION TO BOTH EYES
     Route: 031
     Dates: start: 20170221

REACTIONS (4)
  - Visual impairment [Recovering/Resolving]
  - Medical device site pain [Recovered/Resolved]
  - Lacrimation increased [Recovering/Resolving]
  - Foreign body sensation in eyes [Recovering/Resolving]

NARRATIVE: CASE EVENT DATE: 20180329
